FAERS Safety Report 7806826 (Version 3)
Quarter: 2013Q4

REPORT INFORMATION
  Report Type: Spontaneous
  Country: GB (occurrence: None)
  Receive Date: 20110121
  Receipt Date: 20131122
  Transmission Date: 20140711
  Serious: Yes (Hospitalization)
  Sender: FDA-Public Use
  Company Number: AUR-APL-2011-00236

PATIENT
  Age: 64 Year
  Sex: Male

DRUGS (5)
  1. METFORMIN [Suspect]
     Indication: PRODUCT USED FOR UNKNOWN INDICATION
     Dosage: 500MG (500MG, 1 IN 1 D) ORAL
     Route: 048
     Dates: start: 20090407, end: 20110105
  2. BENDROFLUMETHIAZIDE [Suspect]
     Indication: PRODUCT USED FOR UNKNOWN INDICATION
     Dosage: 25MG (25MG, 1 IN 1 D) ORAL
     Route: 048
     Dates: start: 20090813, end: 20110105
  3. SUNITINIB [Suspect]
     Indication: TRANSITIONAL CELL CARCINOMA
     Dosage: 25MG - ORAL
     Route: 048
     Dates: start: 20100911, end: 20110103
  4. AMLODIPINE [Suspect]
     Indication: PRODUCT USED FOR UNKNOWN INDICATION
     Dosage: 10MG - DAILY - ORAL
     Route: 048
     Dates: start: 20090305, end: 20110106
  5. CANDESARTAN [Concomitant]

REACTIONS (4)
  - Hypotension [None]
  - Dizziness [None]
  - Pyrexia [None]
  - Influenza [None]
